FAERS Safety Report 5758132-1 (Version None)
Quarter: 2008Q2

REPORT INFORMATION
  Report Type: 
  Country: None (occurrence: None)
  Receive Date: 20080530
  Receipt Date: 20080515
  Transmission Date: 20081010
  Serious: Yes (Hospitalization)
  Sender: FDA-Public Use
  Company Number: 028160

PATIENT
  Age: 14 Year
  Sex: Male

DRUGS (2)
  1. CLARAVIS [Suspect]
     Indication: DERMATITIS ACNEIFORM
     Dosage: ORAL
     Route: 048
  2. TESTOSTERONE [Suspect]
     Indication: OSTEOPOROSIS
     Dosage: 50 MG, INTRAMUSCULAR
     Route: 030

REACTIONS (5)
  - ACNE FULMINANS [None]
  - BACK PAIN [None]
  - LOCALISED INFECTION [None]
  - PYREXIA [None]
  - SACROILIITIS [None]
